FAERS Safety Report 20373553 (Version 1)
Quarter: 2022Q1

REPORT INFORMATION
  Report Type: Spontaneous
  Country: FR (occurrence: FR)
  Receive Date: 20220125
  Receipt Date: 20220125
  Transmission Date: 20220423
  Serious: Yes (Other)
  Sender: FDA-Public Use
  Company Number: FR-ABBVIE-22K-056-4241880-00

PATIENT

DRUGS (2)
  1. VENETOCLAX [Suspect]
     Active Substance: VENETOCLAX
     Indication: Acute myeloid leukaemia
     Route: 048
  2. AZACITIDINE [Concomitant]
     Active Substance: AZACITIDINE
     Indication: Product used for unknown indication

REACTIONS (7)
  - Tumour lysis syndrome [Unknown]
  - Systemic candida [Unknown]
  - Cytopenia [Unknown]
  - Neutropenia [Unknown]
  - Fungal infection [Unknown]
  - Drug ineffective [Unknown]
  - Off label use [Unknown]
